FAERS Safety Report 5197257-9 (Version None)
Quarter: 2006Q4

REPORT INFORMATION
  Report Type: 
  Country: None (occurrence: None)
  Receive Date: 20061228
  Receipt Date: 20061213
  Transmission Date: 20070319
  Serious: Yes (Hospitalization)
  Sender: FDA-Public Use
  Company Number: CLOF-10407

PATIENT
  Age: 66 Year
  Sex: Male

DRUGS (8)
  1. CLOFARABINE [Suspect]
     Indication: ACUTE MYELOID LEUKAEMIA
     Dosage: 20 MG/M2 QD IV
     Route: 042
     Dates: start: 20060929, end: 20061002
  2. ATORVASTATIN CALCIUM [Concomitant]
  3. BISOPROLOL FUMARATE [Concomitant]
  4. PERINDOPRIL ERBUMINE [Concomitant]
  5. CHLORHEXIDINE [Concomitant]
  6. CYCLIZINE [Concomitant]
  7. OMEPRAZOLE [Concomitant]
  8. NYSTATIN [Concomitant]

REACTIONS (1)
  - DRUG HYPERSENSITIVITY [None]
